FAERS Safety Report 5097290-1 (Version None)
Quarter: 2006Q3

REPORT INFORMATION
  Report Type: 
  Country: None (occurrence: None)
  Receive Date: 20060901
  Receipt Date: 20060714
  Transmission Date: 20061208
  Serious: Yes (Hospitalization, Other)
  Sender: FDA-Public Use
  Company Number: 2005155053

PATIENT
  Age: 67 Year
  Sex: Male

DRUGS (1)
  1. CELEBREX [Suspect]
     Indication: MUSCULOSKELETAL PAIN
     Dosage: 200 MG (200 MG, 1 IN 1 D)
     Dates: start: 19990101, end: 20041201

REACTIONS (11)
  - ATRIAL FIBRILLATION [None]
  - ATRIAL FLUTTER [None]
  - CARDIAC PACEMAKER INSERTION [None]
  - CAROTID ARTERY STENOSIS [None]
  - CATARACT OPERATION [None]
  - CEREBROVASCULAR ACCIDENT [None]
  - DRUG INEFFECTIVE [None]
  - HYPERTENSION [None]
  - MYOCARDIAL INFARCTION [None]
  - RECTAL HAEMORRHAGE [None]
  - THROMBOSIS [None]
